FAERS Safety Report 13373597 (Version 1)
Quarter: 2017Q1

REPORT INFORMATION
  Report Type: Spontaneous
  Country: US (occurrence: US)
  Receive Date: 20170327
  Receipt Date: 20170327
  Transmission Date: 20170429
  Serious: No
  Sender: FDA-Public Use
  Company Number: US-HILL DERMACEUTICALS, INC.-1064682

PATIENT
  Age: 46 Year
  Sex: Female
  Weight: 61.36 kg

DRUGS (4)
  1. SEROQUEL [Concomitant]
     Active Substance: QUETIAPINE FUMARATE
  2. CLONIDINE HYDROCHLORIDE. [Concomitant]
     Active Substance: CLONIDINE HYDROCHLORIDE
     Route: 048
  3. TOPICORT [Concomitant]
     Active Substance: DESOXIMETASONE
     Route: 061
  4. FLUOCINOLONE ACETONIDE 0.01% OIL EAR DROPS [Suspect]
     Active Substance: FLUOCINOLONE ACETONIDE
     Indication: EAR PRURITUS
     Route: 001

REACTIONS (2)
  - Dermatitis contact [None]
  - Drug abuse [None]
